FAERS Safety Report 12851010 (Version 1)
Quarter: 2016Q4

REPORT INFORMATION
  Report Type: Spontaneous
  Country: FR (occurrence: FR)
  Receive Date: 20161015
  Receipt Date: 20161015
  Transmission Date: 20170207
  Serious: Yes (Hospitalization)
  Sender: FDA-Public Use
  Company Number: FR-ACCORD-044838

PATIENT
  Age: 59 Year
  Sex: Female

DRUGS (8)
  1. METHYLPREDNISOLONE MERCK [Concomitant]
     Active Substance: METHYLPREDNISOLONE
     Indication: PREMEDICATION
     Dosage: STRENGTH: 120 MG, DOSE: 60MG PER COURSE DURING 02 MIN
     Route: 042
     Dates: start: 20160901, end: 20160901
  2. ZOPHREN [Concomitant]
     Active Substance: ONDANSETRON
     Indication: PREMEDICATION
     Dosage: STRENGTH: 8 MG/4 ML, DOSE: 2 MG/ML DURING 15 MIN
     Dates: start: 20160901, end: 20160901
  3. PLITICAN [Concomitant]
     Active Substance: ALIZAPRIDE HYDROCHLORIDE
     Indication: PREMEDICATION
     Dosage: STRENGTH: 50 MG, DOSE:100 MG  DURING 02 MIN
     Route: 042
     Dates: start: 20160901, end: 20160901
  4. CALCIUM GLUCONATE. [Concomitant]
     Active Substance: CALCIUM GLUCONATE
     Indication: PREMEDICATION
     Dosage: STRENGTH 10 %
     Route: 042
     Dates: start: 20160901, end: 20160901
  5. MAGNESIUM HYDROXIDE. [Concomitant]
     Active Substance: MAGNESIUM HYDROXIDE
     Indication: PREMEDICATION
     Dosage: STRENGTH 15 %
     Route: 042
     Dates: start: 20160901, end: 20160901
  6. FLUOROURACIL ACCORD [Suspect]
     Active Substance: FLUOROURACIL
     Indication: RECTAL CANCER
     Dosage: FOLFOX, DOSE: BOLUS 580 MG EQUIVALENT TO 400 MG/M2 AND LOADING DOSE 4350 MG EQUIVALENT TO 1500 MG/M2
     Route: 042
     Dates: start: 20160901, end: 20160902
  7. OXALIPLATIN HOSPIRA [Suspect]
     Active Substance: OXALIPLATIN
     Indication: BREAST CANCER
     Dosage: FOLFOX, DOSE: 123 MG WHICH WAS EQUIVALENT TO LOADING DOSE 85 MG/M2
     Route: 042
     Dates: start: 20160901, end: 20160901
  8. ELVORINE [Concomitant]
     Active Substance: LEUCOVORIN CALCIUM
     Indication: RECTAL CANCER
     Dosage: FOLFOX, DOSE: 290 MG EQUIVALENT TO 200 MG/M2 DURING 02 HOURS.
     Route: 042
     Dates: start: 20160901, end: 20160901

REACTIONS (3)
  - Muscle spasms [Recovered/Resolved]
  - Dystonia [Recovered/Resolved]
  - Speech disorder [Recovered/Resolved]

NARRATIVE: CASE EVENT DATE: 20160902
